FAERS Safety Report 17814966 (Version 1)
Quarter: 2020Q2

REPORT INFORMATION
  Report Type: Spontaneous
  Country: US (occurrence: US)
  Receive Date: 20200522
  Receipt Date: 20200522
  Transmission Date: 20200714
  Serious: Yes (Other)
  Sender: FDA-Public Use
  Company Number: US-HIKMA PHARMACEUTICALS USA INC.-US-H14001-20-51355

PATIENT
  Age: 78 Year
  Sex: Male

DRUGS (4)
  1. OXYGEN. [Concomitant]
     Active Substance: OXYGEN
     Route: 045
  2. METOPROLOL. [Suspect]
     Active Substance: METOPROLOL
     Indication: PULMONARY HYPERTENSION
     Route: 065
  3. FUROSEMIDE. [Concomitant]
     Active Substance: FUROSEMIDE
     Indication: POLYURIA
     Route: 042
  4. OXYGEN. [Concomitant]
     Active Substance: OXYGEN
     Indication: PRODUCT USED FOR UNKNOWN INDICATION
     Route: 045

REACTIONS (2)
  - Bradycardia [Unknown]
  - Pulse pressure decreased [Unknown]
